FAERS Safety Report 6731108-3 (Version None)
Quarter: 2010Q2

REPORT INFORMATION
  Report Type: 
  Country: None (occurrence: None)
  Receive Date: 20100518
  Receipt Date: 20100505
  Transmission Date: 20101027
  Serious: Yes (Other)
  Sender: FDA-Public Use
  Company Number: CA-GENENTECH-300992

PATIENT
  Sex: Female

DRUGS (4)
  1. XOLAIR [Suspect]
     Indication: ASTHMA
     Dosage: 375 MG, Q2W
     Route: 058
     Dates: start: 20100331
  2. XOLAIR [Suspect]
     Dosage: 150 MG, UNKNOWN
     Route: 065
  3. XOLAIR [Suspect]
     Dosage: 150 MG, UNKNOWN
     Route: 065
  4. XOLAIR [Suspect]
     Dosage: 75 MG, UNKNOWN
     Route: 065

REACTIONS (3)
  - EPISTAXIS [None]
  - INJECTION SITE PRURITUS [None]
  - LOSS OF CONSCIOUSNESS [None]
